FAERS Safety Report 4611195-9 (Version None)
Quarter: 2005Q1

REPORT INFORMATION
  Report Type: 
  Country: None (occurrence: None)
  Receive Date: 20050314
  Receipt Date: 20040413
  Transmission Date: 20050727
  Serious: Yes (Hospitalization, Other)
  Sender: FDA-Public Use
  Company Number: USA040260065

PATIENT
  Age: 70 Year
  Sex: Female
  Weight: 108 kg

DRUGS (4)
  1. GEMZAR [Suspect]
     Indication: NON-SMALL CELL LUNG CANCER
     Dosage: 900 MG/M2/21 DAY CYCLE
     Dates: start: 20030919, end: 20040128
  2. GEMZAR [Suspect]
     Indication: NON-SMALL CELL LUNG CANCER
     Dosage: 1000 MG/M2/21 DAY CYCLE
     Dates: start: 20030919, end: 20040128
  3. PACLITAXEL [Concomitant]
  4. CARBOPLATIN [Concomitant]

REACTIONS (2)
  - ANAEMIA [None]
  - HAEMOLYTIC ANAEMIA [None]
